FAERS Safety Report 8652567 (Version 3)
Quarter: 2014Q1

REPORT INFORMATION
  Report Type: Spontaneous
  Country: US (occurrence: None)
  Receive Date: 20120323
  Receipt Date: 20140306
  Transmission Date: 20141002
  Serious: Yes (Hospitalization)
  Sender: FDA-Public Use
  Company Number: 163-21880-11101100

PATIENT
  Age: 77 Year
  Sex: Male

DRUGS (18)
  1. REVLIMID [Suspect]
     Indication: PLASMA CELL MYELOMA
     Dosage: 25 MG, 1 IN 1 D, PO
     Route: 048
     Dates: start: 20101220
  2. AREDIA [Concomitant]
  3. PREDNISONE [Concomitant]
  4. PANTOPRAZOLE [Concomitant]
  5. GABAPENTIN (GABAPENTIN) [Concomitant]
  6. FINASTERIDE [Concomitant]
  7. DEXAMETHASONE (DEXAMETHASONE) [Concomitant]
  8. COZAAR [Concomitant]
  9. BROMDAY SOL (BROMFENAC SODIUM) [Concomitant]
  10. ASPIRIN (ACETYLSALICYLIC ACID) [Concomitant]
  11. PERCOCET [Concomitant]
  12. LASIX (FUROSEMIDE) [Concomitant]
  13. COZAAR [Concomitant]
  14. POTASSIUM (POTASSIUM) [Concomitant]
  15. EMERGEN C [Concomitant]
  16. EYE DROPS [Concomitant]
  17. KLOR CON M [Concomitant]
  18. ANTIBIOTIC [Concomitant]

REACTIONS (4)
  - Pneumonia [None]
  - White blood cell count decreased [None]
  - Sepsis syndrome [None]
  - Bronchitis [None]
